FAERS Safety Report 17899305 (Version 1)
Quarter: 2020Q2

REPORT INFORMATION
  Report Type: Spontaneous
  Country: US (occurrence: US)
  Receive Date: 20200615
  Receipt Date: 20200615
  Transmission Date: 20200714
  Serious: Yes (Other)
  Sender: FDA-Public Use
  Company Number: None

PATIENT
  Age: 83 Year
  Sex: Male
  Weight: 54.5 kg

DRUGS (5)
  1. TOCILIZUMAB 400MG IV ONCE [Concomitant]
     Dates: start: 20200612
  2. REMDESIVIR. [Suspect]
     Active Substance: REMDESIVIR
     Route: 042
     Dates: start: 20200611, end: 20200615
  3. CEFEPIME 1G IV DAILY [Concomitant]
     Dates: start: 20200612
  4. ACETAMINOPHEN 500MG PO Q6H PRN [Concomitant]
     Dates: start: 20200609
  5. METRONIDAZOLE 500MG IV Q12H [Concomitant]
     Dates: start: 20200612, end: 20200614

REACTIONS (1)
  - Transaminases increased [None]

NARRATIVE: CASE EVENT DATE: 20200613
